FAERS Safety Report 7352980-2 (Version None)
Quarter: 2011Q1

REPORT INFORMATION
  Report Type: 
  Country: None (occurrence: None)
  Receive Date: 20110315
  Receipt Date: 20110308
  Transmission Date: 20110831
  Serious: Yes (Hospitalization)
  Sender: FDA-Public Use
  Company Number: A0877039A

PATIENT
  Age: 55 Year
  Sex: Female

DRUGS (1)
  1. AVANDIA [Suspect]
     Route: 048
     Dates: start: 20060501, end: 20100401

REACTIONS (4)
  - CORONARY ARTERY BYPASS [None]
  - HYPOAESTHESIA [None]
  - CORONARY ARTERY DISEASE [None]
  - CARDIAC ARREST [None]
